FAERS Safety Report 6665976-0 (Version None)
Quarter: 2010Q1

REPORT INFORMATION
  Report Type: 
  Country: None (occurrence: None)
  Receive Date: 20100326
  Receipt Date: 20090428
  Transmission Date: 20100710
  Serious: Yes (Other)
  Sender: FDA-Public Use
  Company Number: 2009SU0027FU1

PATIENT
  Age: 75 Year
  Sex: Female
  Weight: 77.1115 kg

DRUGS (10)
  1. SULAR [Suspect]
     Indication: HYPERTENSION
     Dosage: 25.5 MG, DAILY
     Dates: start: 20080820
  2. PROZAC [Concomitant]
  3. XANAX [Concomitant]
  4. BENECAR [Concomitant]
  5. ACIPHEX [Concomitant]
  6. ASPIRIN [Concomitant]
  7. . [Concomitant]
  8. . [Concomitant]
  9. . [Concomitant]
  10. . [Concomitant]

REACTIONS (11)
  - BLOOD PRESSURE INCREASED [None]
  - DIZZINESS POSTURAL [None]
  - DRUG ADMINISTRATION ERROR [None]
  - DRUG INEFFECTIVE [None]
  - ERYTHEMA [None]
  - FATIGUE [None]
  - HEADACHE [None]
  - IRRITABLE BOWEL SYNDROME [None]
  - LOCAL SWELLING [None]
  - RASH [None]
  - SKIN ULCER [None]
